FAERS Safety Report 12629862 (Version 2)
Quarter: 2017Q1

REPORT INFORMATION
  Report Type: Spontaneous
  Country: IT (occurrence: IT)
  Receive Date: 20160808
  Receipt Date: 20170125
  Transmission Date: 20170428
  Serious: Yes (Other)
  Sender: FDA-Public Use
  Company Number: IT-SA-2016SA140069

PATIENT
  Age: 74 Year
  Sex: Male

DRUGS (10)
  1. HUMALOG [Suspect]
     Active Substance: INSULIN LISPRO
     Indication: DIABETES MELLITUS
     Dosage: DOSE-19 IU,IN THOUSANDS
     Route: 058
  2. FLUXUM [Concomitant]
     Active Substance: PARNAPARIN SODIUM
     Dosage: DOSE: 3.200 I.U
     Route: 058
  3. CARDIOASPIRIN [Concomitant]
     Active Substance: ASPIRIN
     Dosage: STRENGTH: 100 MG
  4. SOLOSTAR [Concomitant]
     Active Substance: DEVICE
     Indication: DIABETES MELLITUS
  5. LANTUS SOLOSTAR [Suspect]
     Active Substance: INSULIN GLARGINE
     Indication: DIABETES MELLITUS
     Dosage: DOSE-20 IU,IN THOUSANDS DAILY
     Route: 058
  6. PANTORC [Concomitant]
     Active Substance: PANTOPRAZOLE SODIUM
     Dosage: STRENGTH: 40 MG
  7. STILNOX [Concomitant]
     Active Substance: ZOLPIDEM TARTRATE
     Dosage: STRENGTH: 10 MG
  8. KWIKPEN [Concomitant]
     Route: 058
  9. LUVION [Concomitant]
     Active Substance: CANRENONE
     Dosage: 50 MG
  10. LASIX [Concomitant]
     Active Substance: FUROSEMIDE
     Dosage: STRENGTH: 25 MG

REACTIONS (2)
  - Hypoglycaemia [Recovered/Resolved]
  - Compensatory sweating [Recovered/Resolved]

NARRATIVE: CASE EVENT DATE: 20150518
